FAERS Safety Report 13858234 (Version 2)
Quarter: 2017Q3

REPORT INFORMATION
  Report Type: Spontaneous
  Country: US (occurrence: US)
  Receive Date: 20170811
  Receipt Date: 20170823
  Transmission Date: 20171127
  Serious: No
  Sender: FDA-Public Use
  Company Number: PHEH2017US024752

PATIENT
  Sex: Female

DRUGS (1)
  1. TOBREX [Suspect]
     Active Substance: TOBRAMYCIN
     Indication: CONJUNCTIVITIS
     Dosage: UNK UNK, TID
     Route: 047

REACTIONS (2)
  - Drug ineffective [Unknown]
  - Product quality issue [Unknown]
